FAERS Safety Report 24674100 (Version 2)
Quarter: 2024Q4

REPORT INFORMATION
  Report Type: Spontaneous
  Country: JP (occurrence: JP)
  Receive Date: 20241128
  Receipt Date: 20241208
  Transmission Date: 20250115
  Serious: Yes (Death)
  Sender: GENMAB
  Company Number: JP-GENMAB-2024-04326

PATIENT
  Age: 70 Year
  Sex: Male

DRUGS (1)
  1. EPKINLY [Suspect]
     Active Substance: EPCORITAMAB-BYSP
     Indication: Product used for unknown indication
     Dosage: UNK
     Route: 058

REACTIONS (1)
  - COVID-19 [Fatal]
